FAERS Safety Report 5852832-0 (Version None)
Quarter: 2008Q3

REPORT INFORMATION
  Report Type: 
  Country: None (occurrence: None)
  Receive Date: 20080821
  Receipt Date: 20080811
  Transmission Date: 20090109
  Serious: Yes (Life-Threatening, Other)
  Sender: FDA-Public Use
  Company Number: GB-ELI_LILLY_AND_COMPANY-GB200807004752

PATIENT
  Age: 83 Year
  Sex: Female

DRUGS (8)
  1. FORTEO [Suspect]
     Indication: OSTEOPOROSIS
     Dosage: 20 UG, UNKNOWN
     Route: 058
     Dates: start: 20080710, end: 20080710
  2. CALCIUM [Concomitant]
     Indication: OSTEOPOROSIS
     Dosage: 1 D/F, TWICE DAILY
     Route: 048
  3. VITAMIN D [Concomitant]
     Indication: OSTEOPOROSIS
     Dosage: 1 D/F, 2/D
     Route: 048
  4. DIAZEPAM [Concomitant]
     Indication: OSTEOPOROSIS
     Dosage: 2 MG, UNK
     Route: 048
  5. FENTANYL-25 [Concomitant]
     Indication: OSTEOPOROSIS
     Dosage: 50 MG, EVERY HOUR
     Route: 061
  6. HUMALOG [Concomitant]
     Dosage: UNK, UNK
     Route: 065
  7. LANTUS [Concomitant]
     Dosage: UNK, UNK
     Route: 065
  8. LIOTHYRONINE SODIUM [Concomitant]
     Indication: HYPOTHYROIDISM
     Dosage: 30 MG, UNK
     Route: 048

REACTIONS (1)
  - ANAPHYLACTIC REACTION [None]
